FAERS Safety Report 10638275 (Version 1)
Quarter: 2014Q4

REPORT INFORMATION
  Report Type: Spontaneous
  Country: FR (occurrence: None)
  Receive Date: 20141204
  Receipt Date: 20141204
  Transmission Date: 20150529
  Serious: Yes (Death)
  Sender: FDA-Public Use
  Company Number: 2014011IM007705

PATIENT
  Age: 90 Year
  Sex: Male

DRUGS (2)
  1. PREVISCAN [Concomitant]
     Active Substance: FLUINDIONE
  2. ESBRIET [Suspect]
     Active Substance: PIRFENIDONE
     Indication: IDIOPATHIC PULMONARY FIBROSIS
     Route: 048
     Dates: start: 20141105

REACTIONS (2)
  - Asphyxia [None]
  - Fall [None]

NARRATIVE: CASE EVENT DATE: 20141106
